FAERS Safety Report 9402448 (Version 1)
Quarter: 2013Q3

REPORT INFORMATION
  Report Type: Spontaneous
  Country: CZ (occurrence: CZ)
  Receive Date: 20130716
  Receipt Date: 20130716
  Transmission Date: 20140515
  Serious: Yes (Other)
  Sender: FDA-Public Use
  Company Number: CZ-PFIZER INC-2013205874

PATIENT
  Age: 17 Year
  Sex: Female

DRUGS (5)
  1. METHYLPREDNISOLONE SODIUM SUCCINATE [Suspect]
     Indication: THROMBOTIC THROMBOCYTOPENIC PURPURA
     Dosage: 1 G, 1X/DAY
     Route: 042
  2. METHYLPREDNISOLONE SODIUM SUCCINATE [Suspect]
     Dosage: 500 MG, 1X/DAY
     Route: 017
  3. METHYLPREDNISOLONE SODIUM SUCCINATE [Suspect]
     Dosage: 3 PULSES
     Route: 042
  4. RITUXIMAB [Concomitant]
     Indication: THROMBOTIC THROMBOCYTOPENIC PURPURA
  5. VINCRISTINE [Concomitant]
     Indication: THROMBOTIC THROMBOCYTOPENIC PURPURA
     Dosage: 4 DF, UNK

REACTIONS (1)
  - Diabetes mellitus [Unknown]
